FAERS Safety Report 6299634-1 (Version None)
Quarter: 2009Q3

REPORT INFORMATION
  Report Type: 
  Country: None (occurrence: None)
  Receive Date: 20090805
  Receipt Date: 20090805
  Transmission Date: 20100115
  Serious: Yes (Disabling)
  Sender: FDA-Public Use
  Company Number: None

PATIENT
  Sex: Female
  Weight: 60.3284 kg

DRUGS (1)
  1. DOCETAXEL [Suspect]
     Indication: BREAST CANCER
     Dosage: 130MG IV
     Route: 042
     Dates: start: 20090803, end: 20090803

REACTIONS (3)
  - HEADACHE [None]
  - INFUSION RELATED REACTION [None]
  - NAUSEA [None]
